FAERS Safety Report 5113696-6 (Version None)
Quarter: 2006Q3

REPORT INFORMATION
  Report Type: 
  Country: None (occurrence: None)
  Receive Date: 20060925
  Receipt Date: 20051206
  Transmission Date: 20061208
  Serious: Yes (Hospitalization)
  Sender: FDA-Public Use
  Company Number: 2005CG02029

PATIENT
  Age: 72 Year
  Sex: Female

DRUGS (5)
  1. ARIMIDEX [Suspect]
     Indication: BREAST CANCER
     Route: 048
     Dates: start: 20050101, end: 20050101
  2. ARIMIDEX [Suspect]
     Route: 048
     Dates: start: 20051101, end: 20051106
  3. BENAZEPRIL HCL [Concomitant]
     Dates: end: 20051027
  4. TENORMIN [Concomitant]
     Dates: start: 20051028, end: 20051107
  5. RADIOTHERAPY [Concomitant]
     Indication: BREAST CANCER
     Dates: start: 20050501

REACTIONS (2)
  - SYSTEMIC LUPUS ERYTHEMATOSUS [None]
  - SYSTEMIC LUPUS ERYTHEMATOSUS RASH [None]
